FAERS Safety Report 4708024-1 (Version None)
Quarter: 2005Q2

REPORT INFORMATION
  Report Type: 
  Country: None (occurrence: None)
  Receive Date: 20050629
  Receipt Date: 20050317
  Transmission Date: 20051028
  Serious: No
  Sender: FDA-Public Use
  Company Number: 05P-163-0294468-00

PATIENT
  Age: 55 Year
  Sex: Male
  Weight: 110 kg

DRUGS (14)
  1. HUMIRA [Suspect]
     Indication: RHEUMATOID ARTHRITIS
     Dosage: 40 MG, 1 IN 2 WK, SUBCUTANEOUS
     Route: 058
     Dates: start: 20030101
  2. CALCIUM+D [Concomitant]
  3. CLONIDINE [Concomitant]
  4. SULFASALAZINE [Concomitant]
  5. ASPIRIN [Concomitant]
  6. FUROSEMIDE [Concomitant]
  7. NORVAGE [Concomitant]
  8. MULTI-VITAMINS [Concomitant]
  9. NITROGLYCERIN [Concomitant]
  10. QUINIDINE HCL [Concomitant]
  11. CYANOCOBALAMIN [Concomitant]
  12. RISEDRONATE SODIUM [Concomitant]
  13. LORATADINE [Concomitant]
  14. VICODIN [Concomitant]

REACTIONS (2)
  - INJECTION SITE HAEMORRHAGE [None]
  - INJECTION SITE IRRITATION [None]
